FAERS Safety Report 10220043 (Version 1)
Quarter: 2014Q2

REPORT INFORMATION
  Report Type: Spontaneous
  Country: US (occurrence: US)
  Receive Date: 20140605
  Receipt Date: 20140605
  Transmission Date: 20141212
  Serious: Yes (Other)
  Sender: FDA-Public Use
  Company Number: US-JNJFOC-20140514434

PATIENT
  Sex: 0

DRUGS (2)
  1. LEVOFLOXACIN [Suspect]
     Indication: LATENT TUBERCULOSIS
     Route: 065
  2. PYRAZINAMIDE [Suspect]
     Indication: LATENT TUBERCULOSIS
     Route: 065

REACTIONS (13)
  - Hepatotoxicity [Recovered/Resolved]
  - Ocular hyperaemia [Recovered/Resolved]
  - Arthralgia [Recovered/Resolved]
  - Abdominal pain [Recovered/Resolved]
  - Hepatic enzyme increased [Recovered/Resolved]
  - Vomiting [Recovered/Resolved]
  - Photosensitivity reaction [Recovered/Resolved]
  - Adverse reaction [Recovered/Resolved]
  - Rash [Recovered/Resolved]
  - Myalgia [Recovered/Resolved]
  - Tendon pain [Recovered/Resolved]
  - Transaminases increased [Recovered/Resolved]
  - Flushing [Recovered/Resolved]
